FAERS Safety Report 12842872 (Version 1)
Quarter: 2016Q4

REPORT INFORMATION
  Report Type: Spontaneous
  Country: US (occurrence: US)
  Receive Date: 20161013
  Receipt Date: 20161013
  Transmission Date: 20170207
  Serious: No
  Sender: FDA-Public Use
  Company Number: US-BIOGEN-2016BI00303312

PATIENT
  Sex: Female

DRUGS (1)
  1. TYSABRI [Suspect]
     Active Substance: NATALIZUMAB
     Indication: MULTIPLE SCLEROSIS
     Route: 065
     Dates: start: 20160720

REACTIONS (7)
  - Nasal discomfort [Unknown]
  - Pyrexia [Unknown]
  - Rhinorrhoea [Unknown]
  - Urinary tract infection [Unknown]
  - Chest pain [Unknown]
  - Headache [Unknown]
  - Cough [Unknown]
